FAERS Safety Report 7444517-4 (Version None)
Quarter: 2011Q2

REPORT INFORMATION
  Report Type: 
  Country: None (occurrence: None)
  Receive Date: 20110427
  Receipt Date: 20110427
  Transmission Date: 20111010
  Serious: No
  Sender: FDA-Public Use
  Company Number: None

PATIENT
  Age: 62 Year
  Sex: Male
  Weight: 97.5234 kg

DRUGS (1)
  1. BUPROPION HYDROCHLORIDE [Suspect]
     Indication: AFFECTIVE DISORDER
     Dosage: 150 MG 2 X 24HRS
     Dates: start: 20110101

REACTIONS (2)
  - IRRITABILITY [None]
  - DAYDREAMING [None]
